FAERS Safety Report 8570631-6 (Version None)
Quarter: 2012Q3

REPORT INFORMATION
  Report Type: 
  Country: None (occurrence: None)
  Receive Date: 20120804
  Receipt Date: 20120726
  Transmission Date: 20120928
  Serious: No
  Sender: FDA-Public Use
  Company Number: US-ASTRAZENECA-2012SE53595

PATIENT
  Age: 50 Year
  Sex: Female

DRUGS (2)
  1. PRILOSEC OTC [Suspect]
     Route: 048
  2. NEXIUM [Suspect]
     Route: 048

REACTIONS (6)
  - DISCOMFORT [None]
  - ABDOMINAL DISTENSION [None]
  - ADVERSE EVENT [None]
  - REGURGITATION [None]
  - DRUG INEFFECTIVE [None]
  - DRUG DOSE OMISSION [None]
